FAERS Safety Report 8283937-5 (Version None)
Quarter: 2012Q2

REPORT INFORMATION
  Report Type: 
  Country: None (occurrence: None)
  Receive Date: 20120413
  Receipt Date: 20120403
  Transmission Date: 20120825
  Serious: Yes (Hospitalization)
  Sender: FDA-Public Use
  Company Number: JP-PFIZER INC-2012070042

PATIENT
  Age: 41 Year
  Sex: Female
  Weight: 64.9 kg

DRUGS (4)
  1. VARENICLINE TARTRATE [Suspect]
     Indication: SMOKING CESSATION THERAPY
     Dosage: 0.5 MG, 1X/DAY
     Route: 048
     Dates: start: 20111018, end: 20111020
  2. VARENICLINE TARTRATE [Suspect]
     Dosage: 0.5 MG, 2X/DAY
     Route: 048
     Dates: start: 20111021, end: 20111024
  3. VARENICLINE TARTRATE [Suspect]
     Dosage: 1.0 MG, 2X/DAY
     Route: 048
     Dates: start: 20111025, end: 20120309
  4. VARENICLINE TARTRATE [Suspect]
     Dosage: 1.0 MG, 1X/DAY
     Route: 048
     Dates: start: 20120310, end: 20120310

REACTIONS (1)
  - OVARIAN NEOPLASM [None]
